FAERS Safety Report 9588861 (Version 1)
Quarter: 2013Q4

REPORT INFORMATION
  Report Type: Spontaneous
  Country: US (occurrence: US)
  Receive Date: 20131003
  Receipt Date: 20131003
  Transmission Date: 20140711
  Serious: No
  Sender: FDA-Public Use
  Company Number: US-AMGEN-USASP2012066644

PATIENT
  Age: 52 Year
  Sex: Male
  Weight: 144 kg

DRUGS (12)
  1. ENBREL [Suspect]
     Indication: RHEUMATOID ARTHRITIS
     Dosage: 50 MG, QWK
  2. ALENDRONATE [Concomitant]
     Dosage: 10 MG, UNK
  3. TIMOLOL MALEATE [Concomitant]
     Dosage: 0.25 %, SOLUTION
     Route: 047
  4. LUMIGAN [Concomitant]
     Dosage: 0.01 %, SOLUTION
  5. NAPROXEN [Concomitant]
     Dosage: 500 MG, UNK
  6. DILANTIN                           /00017401/ [Concomitant]
     Dosage: 100 MG, UNK
  7. PHENOBARB                          /00023201/ [Concomitant]
     Dosage: 100 MG, UNK
  8. FOSAMAX [Concomitant]
     Dosage: 10 MG, UNK
  9. ZINC [Concomitant]
     Dosage: 50 MG, UNK
  10. VITAMIN C                          /00008001/ [Concomitant]
     Dosage: 500 MG, UNK
  11. CENTRUM SILVER                     /02363801/ [Concomitant]
     Dosage: UNK
  12. CALCIUM D                          /00944201/ [Concomitant]
     Dosage: UNK

REACTIONS (5)
  - Rheumatoid arthritis [Unknown]
  - Joint effusion [Unknown]
  - Infection [Unknown]
  - Injection site pain [Unknown]
  - Nasopharyngitis [Unknown]
